FAERS Safety Report 19724950 (Version 2)
Quarter: 2022Q2

REPORT INFORMATION
  Report Type: Spontaneous
  Country: DE (occurrence: DE)
  Receive Date: 20210820
  Receipt Date: 20220414
  Transmission Date: 20220721
  Serious: Yes (Hospitalization)
  Sender: FDA-Public Use
  Company Number: DE-BFARM-21006141

PATIENT
  Age: 64 Year
  Sex: Male

DRUGS (13)
  1. SERTRALINE [Suspect]
     Active Substance: SERTRALINE HYDROCHLORIDE
     Indication: Product used for unknown indication
     Dosage: 50 MG, 1-0-0-0, TABLETTEN ()
     Route: 048
  2. LEVOFLOXACIN [Suspect]
     Active Substance: LEVOFLOXACIN
     Indication: Product used for unknown indication
     Dosage: 250 MG, 1-0-1-0, TABLETTEN ()
     Route: 048
  3. DICLOFENAC [Suspect]
     Active Substance: DICLOFENAC
     Indication: Product used for unknown indication
     Dosage: 75 MG, IF NEEDED, CAPSULES ()
     Route: 048
  4. ASPIRIN [Concomitant]
     Active Substance: ASPIRIN
     Indication: Product used for unknown indication
     Dosage: 100 MG, 0-1-0-0, TABLETTEN ()
     Route: 048
  5. PANTOPRAZOLE SODIUM [Concomitant]
     Active Substance: PANTOPRAZOLE SODIUM
     Indication: Product used for unknown indication
     Dosage: 40 MG, 1-0-1-0, TABLETTEN ()
     Route: 048
  6. AMLODIPINE BESYLATE [Concomitant]
     Active Substance: AMLODIPINE BESYLATE
     Indication: Product used for unknown indication
     Dosage: 1-0-0-0, TABLETTEN ()
     Route: 048
  7. AMLODIPINE BESYLATE [Concomitant]
     Active Substance: AMLODIPINE BESYLATE
     Dosage: 5 MG, 1-0-0-0, TABLETTEN ()
     Route: 048
  8. PREGABALIN [Concomitant]
     Active Substance: PREGABALIN
     Indication: Product used for unknown indication
     Dosage: 50 MG, BEI BEDARF, KAPSELN ()
     Route: 048
  9. LORAZEPAM [Concomitant]
     Active Substance: LORAZEPAM
     Indication: Product used for unknown indication
     Dosage: 1 MG, BEI BEDARF, SCHMELZTABLETTEN ()
     Route: 048
  10. METOPROLOL [Concomitant]
     Active Substance: METOPROLOL
     Indication: Product used for unknown indication
     Dosage: 47.5 MG, 1-0-0-0, RETARD-TABLETTEN ()
     Route: 048
  11. CANDESARTAN [Concomitant]
     Active Substance: CANDESARTAN
     Indication: Product used for unknown indication
     Dosage: 16 MG, 1-0-1-0, TABLETTEN ()
     Route: 048
  12. Flohsamen [Concomitant]
     Indication: Product used for unknown indication
     Dosage: IF NECESSARY, POWDER ()
     Route: 048
  13. FENTANYL [Concomitant]
     Active Substance: FENTANYL
     Indication: Product used for unknown indication
     Dosage: 11.56 MG, CHANGE EVERY 3 DAYS, PATCH TRANSDERMAL ()
     Route: 062

REACTIONS (1)
  - Haematochezia [Not Recovered/Not Resolved]

NARRATIVE: CASE EVENT DATE: 20210417
